FAERS Safety Report 5285278-7 (Version None)
Quarter: 2007Q2

REPORT INFORMATION
  Report Type: 
  Country: None (occurrence: None)
  Receive Date: 20070403
  Receipt Date: 20070322
  Transmission Date: 20071010
  Serious: Yes (Other)
  Sender: FDA-Public Use
  Company Number: US-PFIZER INC-2007023563

PATIENT
  Sex: Female
  Weight: 87.1 kg

DRUGS (11)
  1. ZITHROMAX [Suspect]
     Indication: ANTIBIOTIC PROPHYLAXIS
  2. XANAX [Concomitant]
  3. DOXEPIN HCL [Concomitant]
  4. LEVOTHROID [Concomitant]
  5. PREVACID [Concomitant]
  6. LOESTRIN [Concomitant]
  7. EFFEXOR [Concomitant]
  8. CALCIUM [Concomitant]
  9. VITAMIN D [Concomitant]
  10. IRON [Concomitant]
  11. MAGNESIUM [Concomitant]

REACTIONS (7)
  - DIZZINESS [None]
  - GASTRIC POLYPS [None]
  - HUNGER [None]
  - OESOPHAGEAL STENOSIS [None]
  - STOMACH DISCOMFORT [None]
  - VERTIGO [None]
  - VITAMIN D DEFICIENCY [None]
